FAERS Safety Report 9216125 (Version 2)
Quarter: 2013Q2

REPORT INFORMATION
  Report Type: Spontaneous
  Country: US (occurrence: US)
  Receive Date: 20130408
  Receipt Date: 20130530
  Transmission Date: 20140414
  Serious: Yes (Other)
  Sender: FDA-Public Use
  Company Number: US-009507513-1304USA002219

PATIENT
  Age: 26 Year
  Sex: Female
  Weight: 59.86 kg

DRUGS (2)
  1. IMPLANON [Suspect]
     Dosage: UNK
     Dates: start: 20120608, end: 20130416
  2. FLONASE [Concomitant]

REACTIONS (3)
  - Medical device complication [Recovered/Resolved]
  - Weight increased [Unknown]
  - Acne [Unknown]
